FAERS Safety Report 5697452-6 (Version None)
Quarter: 2008Q2

REPORT INFORMATION
  Report Type: 
  Country: None (occurrence: None)
  Receive Date: 20080407
  Receipt Date: 20080327
  Transmission Date: 20081010
  Serious: Yes (Other)
  Sender: FDA-Public Use
  Company Number: PHHY2008BR03951

PATIENT
  Age: 74 Year
  Sex: Male
  Weight: 97.5 kg

DRUGS (4)
  1. AMLOVASC [Concomitant]
     Indication: BLOOD PRESSURE
  2. GALVUS MET [Suspect]
     Dosage: 850/50 MG, 4 TABLETS
     Route: 048
  3. GALVUS MET [Suspect]
     Dosage: 850/100 MG, 1 TAB EVERY 12 HRS
     Route: 048
  4. GLIMEPIRIDE [Concomitant]
     Indication: DIABETES MELLITUS
     Dosage: 1 MG, BID
     Route: 048

REACTIONS (3)
  - BLOOD GLUCOSE INCREASED [None]
  - DRUG INEFFECTIVE [None]
  - MEDICATION ERROR [None]
